FAERS Safety Report 7218568-9 (Version None)
Quarter: 2011Q1

REPORT INFORMATION
  Report Type: 
  Country: None (occurrence: None)
  Receive Date: 20110110
  Receipt Date: 20110103
  Transmission Date: 20110831
  Serious: Yes (Hospitalization, Other)
  Sender: FDA-Public Use
  Company Number: FR-PFIZER INC-2011000140

PATIENT
  Age: 78 Year
  Sex: Female

DRUGS (10)
  1. RISPERDAL [Suspect]
     Dosage: 2 MG, 1X/DAY
     Route: 048
  2. LANTUS [Concomitant]
  3. ZOLOFT [Suspect]
     Dosage: 50 MG, 1X/DAY
     Route: 048
     Dates: end: 20101127
  4. AMLOR [Concomitant]
  5. CLOPIXOL - SLOW RELEASE [Suspect]
     Indication: PSYCHOTIC DISORDER
     Dosage: 200 MG, MONTHLY
     Route: 030
     Dates: end: 20101127
  6. DIAMICRON [Concomitant]
  7. CLOPIXOL (HYDROCHLORIDE) [Suspect]
     Indication: PSYCHOTIC DISORDER
     Dosage: 5 DF, 2X/DAY
     Route: 048
     Dates: end: 20101127
  8. LEVOTHYROX [Concomitant]
  9. TIAPRIDAL [Concomitant]
  10. PARKINANE [Suspect]
     Dosage: 5 MG, 2X/DAY
     Route: 048
     Dates: end: 20101127

REACTIONS (4)
  - ELECTROCARDIOGRAM QT PROLONGED [None]
  - ABNORMAL BEHAVIOUR [None]
  - AGGRESSION [None]
  - HALLUCINATION [None]
